FAERS Safety Report 8079191-X (Version None)
Quarter: 2012Q1

REPORT INFORMATION
  Report Type: 
  Country: None (occurrence: None)
  Receive Date: 20120128
  Receipt Date: 20110817
  Transmission Date: 20120608
  Serious: No
  Sender: FDA-Public Use
  Company Number: US-ABBOTT-11P-163-0847252-00

PATIENT
  Sex: Female
  Weight: 44.038 kg

DRUGS (12)
  1. HUMIRA [Suspect]
     Indication: RHEUMATOID ARTHRITIS
     Dates: start: 20110501
  2. FOLIC ACID [Concomitant]
     Indication: VITAMIN SUPPLEMENTATION
  3. BENICAR [Concomitant]
     Indication: HYPERTENSION
  4. ELAVIL [Concomitant]
     Indication: INSOMNIA
  5. ELAVIL [Concomitant]
     Indication: MIGRAINE
  6. A TO Z VITAMIN [Concomitant]
     Indication: VITAMIN SUPPLEMENTATION
  7. CLARITIN [Concomitant]
     Indication: SEASONAL ALLERGY
  8. GLUCOSAMINE/CHONDROITIN [Concomitant]
     Indication: RHEUMATOID ARTHRITIS
  9. CALCIUM [Concomitant]
     Indication: OSTEOPOROSIS
  10. PAXIL [Concomitant]
     Indication: DEPRESSION
  11. VITAMIN D [Concomitant]
     Indication: VITAMIN SUPPLEMENTATION
  12. LOVAZA [Concomitant]
     Indication: SUPPLEMENTATION THERAPY

REACTIONS (3)
  - INJECTION SITE PAIN [None]
  - ARTHRITIS [None]
  - DRUG INEFFECTIVE [None]
